FAERS Safety Report 5880263-6 (Version None)
Quarter: 2008Q3

REPORT INFORMATION
  Report Type: 
  Country: None (occurrence: None)
  Receive Date: 20080912
  Receipt Date: 20070625
  Transmission Date: 20090109
  Serious: No
  Sender: FDA-Public Use
  Company Number: US-BAYER-US-2007-023524

PATIENT
  Sex: Male

DRUGS (1)
  1. ULTRAVIST 300 [Suspect]
     Indication: COMPUTERISED TOMOGRAM
     Dosage: TOTAL DAILY DOSE: 100 ML
     Route: 042
     Dates: start: 20070601, end: 20070601

REACTIONS (2)
  - EYE PRURITUS [None]
  - OCULAR HYPERAEMIA [None]
